FAERS Safety Report 24667133 (Version 1)
Quarter: 2024Q4

REPORT INFORMATION
  Report Type: Spontaneous
  Country: CN (occurrence: CN)
  Receive Date: 20241126
  Receipt Date: 20241126
  Transmission Date: 20250115
  Serious: Yes (Hospitalization, Other)
  Sender: MERCK
  Company Number: CN-009507513-2411CHN008562

PATIENT
  Age: 58 Year
  Sex: Female

DRUGS (2)
  1. CILASTATIN SODIUM\IMIPENEM [Suspect]
     Active Substance: CILASTATIN SODIUM\IMIPENEM
     Indication: Anti-infective therapy
     Dosage: 1 GRAM, QID
     Route: 041
     Dates: start: 20241014, end: 20241103
  2. METOCLOPRAMIDE DIHYDROCHLORIDE [Suspect]
     Active Substance: METOCLOPRAMIDE DIHYDROCHLORIDE
     Indication: Antiemetic supportive care
     Dosage: 10 MG, TID
     Route: 030
     Dates: start: 20241031, end: 20241103

REACTIONS (4)
  - Delirium [Recovering/Resolving]
  - Decreased appetite [Unknown]
  - Nausea [Unknown]
  - Vomiting [Unknown]

NARRATIVE: CASE EVENT DATE: 20241102
